FAERS Safety Report 9353776 (Version 1)
Quarter: 2013Q2

REPORT INFORMATION
  Report Type: Spontaneous
  Country: US (occurrence: US)
  Receive Date: 20130618
  Receipt Date: 20130618
  Transmission Date: 20140414
  Serious: Yes (Hospitalization)
  Sender: FDA-Public Use
  Company Number: US-PFIZER INC-2013180969

PATIENT
  Age: 24 Year
  Sex: Male

DRUGS (1)
  1. PROPANOLOL HCL [Suspect]
     Dosage: UNK
     Route: 048

REACTIONS (4)
  - Psychotic disorder [Recovering/Resolving]
  - Tachycardia [Recovering/Resolving]
  - Mydriasis [Recovering/Resolving]
  - Hyperhidrosis [Recovering/Resolving]
